FAERS Safety Report 7237309-2 (Version None)
Quarter: 2011Q1

REPORT INFORMATION
  Report Type: 
  Country: None (occurrence: None)
  Receive Date: 20110121
  Receipt Date: 20110110
  Transmission Date: 20110831
  Serious: Yes (Hospitalization, Other)
  Sender: FDA-Public Use
  Company Number: US-ELI_LILLY_AND_COMPANY-US201010003851

PATIENT
  Sex: Female

DRUGS (6)
  1. FORTEO [Suspect]
     Indication: OSTEOPOROSIS
     Dosage: 20 UG, DAILY (1/D)
     Route: 065
     Dates: start: 20101008
  2. ACTOS [Concomitant]
  3. LISINOPRIL [Concomitant]
  4. HUMIRA [Concomitant]
  5. COREG [Concomitant]
  6. SIMVASTATIN [Concomitant]

REACTIONS (20)
  - PNEUMONIA [None]
  - CHILLS [None]
  - VOMITING [None]
  - CONSTIPATION [None]
  - PLEURISY [None]
  - DIARRHOEA [None]
  - CHEST DISCOMFORT [None]
  - OEDEMA PERIPHERAL [None]
  - CARDIAC FAILURE [None]
  - GASTROENTERITIS VIRAL [None]
  - GASTROINTESTINAL DISORDER [None]
  - NAUSEA [None]
  - JOINT SWELLING [None]
  - MYOCARDIAL INFARCTION [None]
  - PULMONARY OEDEMA [None]
  - LUNG DISORDER [None]
  - PYREXIA [None]
  - DRUG DOSE OMISSION [None]
  - MUSCULAR WEAKNESS [None]
  - ASTHENIA [None]
